FAERS Safety Report 17348937 (Version 2)
Quarter: 2020Q3

REPORT INFORMATION
  Report Type: Spontaneous
  Country: US (occurrence: US)
  Receive Date: 20200130
  Receipt Date: 20200922
  Transmission Date: 20201102
  Serious: Yes (Other)
  Sender: FDA-Public Use
  Company Number: US-GILEAD-2020-0448801

PATIENT
  Age: 45 Year
  Sex: Male
  Weight: 50.8 kg

DRUGS (38)
  1. SUSTIVA [Concomitant]
     Active Substance: EFAVIRENZ
  2. CIPROFLOXACIN. [Concomitant]
     Active Substance: CIPROFLOXACIN
  3. FLUCONAZOLE. [Concomitant]
     Active Substance: FLUCONAZOLE
  4. SODIUM BICARBONATE. [Concomitant]
     Active Substance: SODIUM BICARBONATE
  5. GENVOYA [Concomitant]
     Active Substance: COBICISTAT\ELVITEGRAVIR\EMTRICITABINE\TENOFOVIR ALAFENAMIDE FUMARATE
  6. VIDEX [Concomitant]
     Active Substance: DIDANOSINE
  7. LEVOFLOXACIN. [Concomitant]
     Active Substance: LEVOFLOXACIN
  8. PREDNISONE. [Concomitant]
     Active Substance: PREDNISONE
  9. EPIVIR [Concomitant]
     Active Substance: LAMIVUDINE
  10. ALBUTEROL SULFATE. [Concomitant]
     Active Substance: ALBUTEROL SULFATE
  11. DRONABINOL. [Concomitant]
     Active Substance: DRONABINOL
  12. STRIBILD [Suspect]
     Active Substance: COBICISTAT\ELVITEGRAVIR\EMTRICITABINE\TENOFOVIR DISOPROXIL FUMARATE
     Dosage: UNK
     Route: 048
     Dates: start: 20140421, end: 20140430
  13. NORVIR [Concomitant]
     Active Substance: RITONAVIR
  14. VIRAMUNE XR [Concomitant]
     Active Substance: NEVIRAPINE
  15. NEXIUM [Concomitant]
     Active Substance: ESOMEPRAZOLE MAGNESIUM
  16. PANTOPRAZOLE [Concomitant]
     Active Substance: PANTOPRAZOLE
  17. SULFAMETHOXAZOLE [Concomitant]
     Active Substance: SULFAMETHOXAZOLE
  18. TRIUMEQ [Concomitant]
     Active Substance: ABACAVIR SULFATE\DOLUTEGRAVIR SODIUM\LAMIVUDINE
  19. ZERIT [Concomitant]
     Active Substance: STAVUDINE
  20. VENTOLINE [SALBUTAMOL] [Concomitant]
     Active Substance: ALBUTEROL SULFATE
  21. ROCEPHINE [Concomitant]
     Active Substance: CEFTRIAXONE SODIUM
  22. STRIBILD [Suspect]
     Active Substance: COBICISTAT\ELVITEGRAVIR\EMTRICITABINE\TENOFOVIR DISOPROXIL FUMARATE
     Dosage: UNK
     Route: 048
     Dates: start: 20150406, end: 20160511
  23. REYATAZ [Concomitant]
     Active Substance: ATAZANAVIR SULFATE
  24. VIRACEPT [Concomitant]
     Active Substance: NELFINAVIR MESYLATE
  25. ABACAVIR. [Concomitant]
     Active Substance: ABACAVIR
  26. OMEPRAZOLE. [Concomitant]
     Active Substance: OMEPRAZOLE
  27. PHOSPHA 250 NEUTRAL [Concomitant]
     Active Substance: POTASSIUM PHOSPHATE, MONOBASIC\SODIUM PHOSPHATE, DIBASIC, ANHYDROUS\SODIUM PHOSPHATE, MONOBASIC, MONOHYDRATE
  28. VIREAD [Suspect]
     Active Substance: TENOFOVIR DISOPROXIL FUMARATE
     Indication: HIV INFECTION
     Dosage: UNK
     Route: 048
     Dates: start: 201309, end: 201605
  29. TRUVADA [Suspect]
     Active Substance: EMTRICITABINE\TENOFOVIR DISOPROXIL FUMARATE
     Indication: HIV INFECTION
     Dosage: UNK
     Route: 048
  30. COMBIVIR [Concomitant]
     Active Substance: LAMIVUDINE\ZIDOVUDINE
  31. VIRAMUNE [Concomitant]
     Active Substance: NEVIRAPINE
  32. ZIAGEN [Concomitant]
     Active Substance: ABACAVIR SULFATE
  33. BACTRIM [Concomitant]
     Active Substance: SULFAMETHOXAZOLE\TRIMETHOPRIM
  34. ESOMEPRAZOLE. [Concomitant]
     Active Substance: ESOMEPRAZOLE MAGNESIUM
  35. PROMETHAZINE [Concomitant]
     Active Substance: PROMETHAZINE HYDROCHLORIDE
  36. STRIBILD [Suspect]
     Active Substance: COBICISTAT\ELVITEGRAVIR\EMTRICITABINE\TENOFOVIR DISOPROXIL FUMARATE
     Indication: HIV INFECTION
     Dosage: UNK
     Route: 048
     Dates: start: 20130919, end: 20131019
  37. AZITHROMYCIN ANHYDROUS. [Concomitant]
     Active Substance: AZITHROMYCIN ANHYDROUS
  38. POTASSIUM [Concomitant]
     Active Substance: POTASSIUM

REACTIONS (17)
  - Anxiety [Not Recovered/Not Resolved]
  - Anhedonia [Not Recovered/Not Resolved]
  - Muscular weakness [Unknown]
  - Depression [Not Recovered/Not Resolved]
  - Osteoporosis [Not Recovered/Not Resolved]
  - Decreased activity [Not Recovered/Not Resolved]
  - Spinal compression fracture [Not Recovered/Not Resolved]
  - Body height decreased [Unknown]
  - Economic problem [Not Recovered/Not Resolved]
  - Back pain [Not Recovered/Not Resolved]
  - Osteopenia [Not Recovered/Not Resolved]
  - Pain in extremity [Not Recovered/Not Resolved]
  - Bone density decreased [Unknown]
  - Musculoskeletal stiffness [Not Recovered/Not Resolved]
  - Emotional distress [Not Recovered/Not Resolved]
  - Pain [Not Recovered/Not Resolved]
  - Spinal pain [Not Recovered/Not Resolved]

NARRATIVE: CASE EVENT DATE: 201505
